FAERS Safety Report 12930564 (Version 1)
Quarter: 2016Q4

REPORT INFORMATION
  Report Type: Spontaneous
  Country: US (occurrence: US)
  Receive Date: 20161111
  Receipt Date: 20161111
  Transmission Date: 20170207
  Serious: No
  Sender: FDA-Public Use
  Company Number: None

PATIENT
  Age: 74 Year
  Sex: Female

DRUGS (7)
  1. SILDENAFIL TAB 20MG [Suspect]
     Active Substance: SILDENAFIL
     Indication: HYPERLIPIDAEMIA
  2. SILDENAFIL TAB 20MG [Suspect]
     Active Substance: SILDENAFIL
     Indication: PULMONARY ARTERIAL HYPERTENSION
  3. SILDENAFIL TAB 20MG [Suspect]
     Active Substance: SILDENAFIL
     Indication: DRUG THERAPY
  4. SILDENAFIL TAB 20MG [Suspect]
     Active Substance: SILDENAFIL
     Indication: ESSENTIAL HYPERTENSION
  5. SILDENAFIL TAB 20MG [Suspect]
     Active Substance: SILDENAFIL
     Indication: RHINITIS ALLERGIC
  6. SILDENAFIL TAB 20MG [Suspect]
     Active Substance: SILDENAFIL
     Indication: ASTHMA
  7. SILDENAFIL TAB 20MG [Suspect]
     Active Substance: SILDENAFIL
     Indication: ARTHRALGIA

REACTIONS (3)
  - Peripheral swelling [None]
  - Vein rupture [None]
  - Gastrointestinal haemorrhage [None]

NARRATIVE: CASE EVENT DATE: 20161111
